FAERS Safety Report 23078994 (Version 1)
Quarter: 2023Q4

REPORT INFORMATION
  Report Type: Spontaneous
  Country: JP (occurrence: JP)
  Receive Date: 20231018
  Receipt Date: 20231018
  Transmission Date: 20240110
  Serious: Yes (Other)
  Sender: FDA-Public Use
  Company Number: JP-MLMSERVICE-20230925-4562078-1

PATIENT
  Age: 72 Year
  Sex: Female

DRUGS (3)
  1. OXALIPLATIN [Suspect]
     Active Substance: OXALIPLATIN
     Indication: Small intestine adenocarcinoma
     Dosage: ON DAY 1, EVERY 3 WEEKS
  2. GIMERACIL\OTERACIL\TEGAFUR [Suspect]
     Active Substance: GIMERACIL\OTERACIL POTASSIUM\TEGAFUR
     Indication: Small intestine adenocarcinoma
     Dosage: REDUCED BY TWO LEVELS
  3. GIMERACIL\OTERACIL\TEGAFUR [Suspect]
     Active Substance: GIMERACIL\OTERACIL POTASSIUM\TEGAFUR
     Indication: Small intestine adenocarcinoma
     Dosage: 40 MG TWICE DAILY ON DAYS 1-14

REACTIONS (1)
  - Enteritis [Recovering/Resolving]
